FAERS Safety Report 9617607 (Version 1)
Quarter: 2013Q4

REPORT INFORMATION
  Report Type: Spontaneous
  Country: US (occurrence: None)
  Receive Date: 20131009
  Receipt Date: 20131009
  Transmission Date: 20140711
  Serious: No
  Sender: FDA-Public Use
  Company Number: 2013AP008628

PATIENT
  Age: 53 Year
  Sex: Female

DRUGS (4)
  1. BUPROPION HYDROCHLORIDE TABLETS [Suspect]
     Route: 048
  2. METFORMIN [Suspect]
     Route: 048
  3. AMITRIPTYLINE [Suspect]
     Route: 048
  4. METHADONE [Suspect]
     Route: 048

REACTIONS (2)
  - Completed suicide [None]
  - Cardio-respiratory arrest [None]
